FAERS Safety Report 5795984-3 (Version None)
Quarter: 2008Q3

REPORT INFORMATION
  Report Type: 
  Country: None (occurrence: None)
  Receive Date: 20080701
  Receipt Date: 20080623
  Transmission Date: 20090109
  Serious: Yes (Hospitalization)
  Sender: FDA-Public Use
  Company Number: CA-JNJFOC-20080306023

PATIENT
  Weight: 112.7 kg

DRUGS (14)
  1. REMICADE [Suspect]
  2. REMICADE [Suspect]
  3. REMICADE [Suspect]
  4. REMICADE [Suspect]
  5. REMICADE [Suspect]
  6. REMICADE [Suspect]
  7. REMICADE [Suspect]
  8. REMICADE [Suspect]
  9. REMICADE [Suspect]
  10. REMICADE [Suspect]
     Indication: CROHN'S DISEASE
  11. REMICADE [Suspect]
     Indication: ANKYLOSING SPONDYLITIS
  12. BENADRYL [Concomitant]
     Indication: PREMEDICATION
     Route: 048
  13. TYLENOL [Concomitant]
     Indication: PREMEDICATION
     Route: 048
  14. SOLU-CORTEF [Concomitant]
     Indication: PREMEDICATION
     Route: 042

REACTIONS (3)
  - HEADACHE [None]
  - HYPOAESTHESIA [None]
  - TREMOR [None]
